FAERS Safety Report 21084672 (Version 1)
Quarter: 2022Q3

REPORT INFORMATION
  Report Type: 
  Country: US (occurrence: US)
  Receive Date: 20220714
  Receipt Date: 20220714
  Transmission Date: 20221027
  Serious: Yes (Other)
  Sender: FDA-Public Use
  Company Number: US-Fresenius Medical Care Renal Therapies Group-FMC-2206-000975

PATIENT
  Age: 79 Year
  Sex: Male
  Weight: 64.5 kg

DRUGS (3)
  1. DELFLEX WITH DEXTROSE 1.5% LOW MAGNESIUM LOW CALCIUM [Suspect]
     Active Substance: CALCIUM CHLORIDE\DEXTROSE\MAGNESIUM CHLORIDE\SODIUM CHLORIDE\SODIUM LACTATE
     Indication: End stage renal disease
     Dosage: INITIAL FILL VOLUME 2500 ML, EXCHANGES  3, FILL VOLUME = 2200 ML, DWELL TIME = 1.0 HOUR 50 MINUTES,
     Route: 033
     Dates: start: 20201207
  2. DELFLEX WITH DEXTROSE 2.5% LOW MAGNESIUM LOW CALCIUM [Suspect]
     Active Substance: CALCIUM CHLORIDE\DEXTROSE\MAGNESIUM CHLORIDE\SODIUM CHLORIDE\SODIUM LACTATE
     Indication: End stage renal disease
     Dosage: INITIAL FILL VOLUME = 2500 ML, EXCHANGES = 3, FILL VOLUME = 2200 ML, DWELL TIME = 1.0 HOUR 50 MINUT
     Route: 033
     Dates: start: 20201207
  3. DELFLEX WITH DEXTROSE 4.25% LOW MAGNESIUM LOW CALCIUM [Suspect]
     Active Substance: CALCIUM CHLORIDE\DEXTROSE\MAGNESIUM CHLORIDE\SODIUM CHLORIDE\SODIUM LACTATE
     Indication: End stage renal disease
     Dosage: INITIAL FILL VOLUME = 2500 ML, EXCHANGES = 3, FILL VOLUME = 2200 ML, DWELL TIME = 1.0 HOUR 50 MINUT
     Route: 033
     Dates: start: 20201207

REACTIONS (3)
  - Peritonitis bacterial [Recovered/Resolved]
  - Pruritus [Unknown]
  - Muscle spasms [Not Recovered/Not Resolved]
